FAERS Safety Report 14187522 (Version 2)
Quarter: 2018Q1

REPORT INFORMATION
  Report Type: Spontaneous
  Country: IT (occurrence: IT)
  Receive Date: 20171114
  Receipt Date: 20180130
  Transmission Date: 20180508
  Serious: Yes (Hospitalization)
  Sender: FDA-Public Use
  Company Number: IT-JNJFOC-20171110077

PATIENT
  Age: 80 Year
  Sex: Female

DRUGS (1)
  1. DUROGESIC [Suspect]
     Active Substance: FENTANYL
     Indication: PAIN
     Route: 062

REACTIONS (3)
  - Confusional state [Unknown]
  - Malaise [Unknown]
  - Sopor [Unknown]

NARRATIVE: CASE EVENT DATE: 20171106
